FAERS Safety Report 10637426 (Version 1)
Quarter: 2014Q4

REPORT INFORMATION
  Report Type: Spontaneous
  Country: US (occurrence: US)
  Receive Date: 20141208
  Receipt Date: 20141208
  Transmission Date: 20150529
  Serious: No
  Sender: FDA-Public Use
  Company Number: US-EISAI MEDICAL RESEARCH-E2020-14399-SPO-US

PATIENT
  Sex: Male

DRUGS (3)
  1. DONEPEZIL [Suspect]
     Active Substance: DONEPEZIL
     Dosage: 20 MG DAILY (10 MG 2 PILLS A DAY)
     Route: 048
  2. VITAMINS [Concomitant]
     Active Substance: VITAMINS
  3. DONEPEZIL [Suspect]
     Active Substance: DONEPEZIL
     Indication: PRODUCT USED FOR UNKNOWN INDICATION
     Dosage: 10 MG DAILY
     Route: 048

REACTIONS (4)
  - Abdominal pain upper [Unknown]
  - Nervousness [Unknown]
  - Dizziness [Unknown]
  - Diarrhoea [Unknown]
